FAERS Safety Report 18123474 (Version 4)
Quarter: 2020Q4

REPORT INFORMATION
  Report Type: Spontaneous
  Country: CA (occurrence: CA)
  Receive Date: 20200807
  Receipt Date: 20201201
  Transmission Date: 20210113
  Serious: Yes (Hospitalization, Other)
  Sender: FDA-Public Use
  Company Number: CA-GLAXOSMITHKLINE-CA2020AMR149217

PATIENT
  Sex: Female
  Weight: 104 kg

DRUGS (5)
  1. BENLYSTA [Suspect]
     Active Substance: BELIMUMAB
     Indication: SYSTEMIC LUPUS ERYTHEMATOSUS
     Dosage: UNK UNK, Z (10MG/KG IV EVERY 4 WEEKS)
     Dates: start: 20160516
  2. BENLYSTA [Suspect]
     Active Substance: BELIMUMAB
     Dosage: UNK UNK, Z (10MG/KG IV EVERY 4 WEEKS)
  3. BENLYSTA [Suspect]
     Active Substance: BELIMUMAB
     Dosage: UNK UNK, Z (10MG/KG IV EVERY 4 WEEKS)
  4. PLAQUENIL [Suspect]
     Active Substance: HYDROXYCHLOROQUINE SULFATE
     Indication: PRODUCT USED FOR UNKNOWN INDICATION
     Dosage: UNK
  5. BENLYSTA [Suspect]
     Active Substance: BELIMUMAB
     Dosage: UNK UNK, Z (10MG/KG IV EVERY 4 WEEKS)

REACTIONS (9)
  - Heart valve incompetence [Unknown]
  - Intervertebral disc protrusion [Unknown]
  - Pleural effusion [Unknown]
  - Fatigue [Unknown]
  - Coagulation factor increased [Unknown]
  - Pericarditis [Unknown]
  - Condition aggravated [Unknown]
  - Chest pain [Unknown]
  - Pericardial effusion [Unknown]
